FAERS Safety Report 23772246 (Version 4)
Quarter: 2024Q2

REPORT INFORMATION
  Report Type: Spontaneous
  Country: FR (occurrence: FR)
  Receive Date: 20240423
  Receipt Date: 20240611
  Transmission Date: 20240716
  Serious: Yes (Life-Threatening)
  Sender: FDA-Public Use
  Company Number: FR-BIOGARAN-B24000671

PATIENT
  Age: 69 Year
  Sex: Male
  Weight: 78 kg

DRUGS (4)
  1. FENOFIBRATE [Suspect]
     Active Substance: FENOFIBRATE
     Indication: Dyslipidaemia
     Dosage: UNK
     Route: 065
     Dates: start: 202401, end: 20240328
  2. FENOFIBRATE [Suspect]
     Active Substance: FENOFIBRATE
     Route: 048
     Dates: start: 20240115, end: 20240403
  3. ARAVA [Concomitant]
     Active Substance: LEFLUNOMIDE
     Indication: Psoriatic arthropathy
     Route: 048
     Dates: start: 2023
  4. ATENOLOL [Concomitant]
     Active Substance: ATENOLOL
     Indication: Hypertension
     Route: 048

REACTIONS (7)
  - Decreased appetite [Recovering/Resolving]
  - Fat tissue decreased [Unknown]
  - Dysstasia [Unknown]
  - Weight decreased [Unknown]
  - Myalgia [Unknown]
  - General physical health deterioration [Recovered/Resolved]
  - Muscle spasms [Recovered/Resolved]

NARRATIVE: CASE EVENT DATE: 20240101
